FAERS Safety Report 11508722 (Version 2)
Quarter: 2017Q1

REPORT INFORMATION
  Report Type: Spontaneous
  Country: RO (occurrence: RO)
  Receive Date: 20150915
  Receipt Date: 20170125
  Transmission Date: 20170428
  Serious: Yes (Death, Other)
  Sender: FDA-Public Use
  Company Number: RO-SHIRE-RO201511471

PATIENT
  Age: 11 Year
  Sex: Male
  Weight: 22 kg

DRUGS (4)
  1. FUROSEMID                          /00032601/ [Concomitant]
     Active Substance: FUROSEMIDE
     Indication: CARDIOMYOPATHY
     Dosage: 1 MG/KG, 1X/DAY:QD
     Route: 065
     Dates: start: 20140518, end: 20150905
  2. OXYGEN. [Concomitant]
     Active Substance: OXYGEN
     Indication: OXYGEN SUPPLEMENTATION
     Dosage: UNK, UNKNOWN
     Route: 065
  3. CAPTOPRIL. [Concomitant]
     Active Substance: CAPTOPRIL
     Indication: CARDIOMYOPATHY
     Dosage: 0.4 MG/KG, 1X/DAY:QD
     Route: 065
     Dates: start: 20140518, end: 20150905
  4. ELAPRASE [Suspect]
     Active Substance: IDURSULFASE
     Indication: MUCOPOLYSACCHARIDOSIS II
     Dosage: 0.5 MG/KG, 1X/WEEK
     Route: 041
     Dates: start: 20111103

REACTIONS (3)
  - Dysphagia [Unknown]
  - Apnoea [Fatal]
  - Choking [Unknown]

NARRATIVE: CASE EVENT DATE: 20150906
